FAERS Safety Report 21476229 (Version 1)
Quarter: 2022Q4

REPORT INFORMATION
  Report Type: Report from Study
  Country: US (occurrence: US)
  Receive Date: 20221019
  Receipt Date: 20221019
  Transmission Date: 20230112
  Serious: No
  Sender: FDA-Public Use
  Company Number: US-ABBVIE-4158295

PATIENT
  Sex: Female

DRUGS (1)
  1. SKYRIZI [Suspect]
     Active Substance: RISANKIZUMAB-RZAA
     Indication: Psoriasis
     Route: 058

REACTIONS (8)
  - Exostosis [Recovering/Resolving]
  - Intervertebral disc protrusion [Recovering/Resolving]
  - Arthritis [Recovering/Resolving]
  - Hypersensitivity [Recovering/Resolving]
  - Upper respiratory tract infection [Recovering/Resolving]
  - Foot deformity [Recovering/Resolving]
  - Stress [Recovering/Resolving]
  - Rash [Recovering/Resolving]
